FAERS Safety Report 20244322 (Version 2)
Quarter: 2022Q1

REPORT INFORMATION
  Report Type: Spontaneous
  Country: US (occurrence: US)
  Receive Date: 20211229
  Receipt Date: 20220120
  Transmission Date: 20220424
  Serious: No
  Sender: FDA-Public Use
  Company Number: US-GLAXOSMITHKLINE-US2021260663

PATIENT
  Sex: Female

DRUGS (3)
  1. ZEJULA [Suspect]
     Active Substance: NIRAPARIB
     Indication: Ovarian cancer
     Dosage: 200 MG, QD
     Route: 048
     Dates: start: 20211123
  2. KETOPROFEN [Suspect]
     Active Substance: KETOPROFEN
     Indication: Back pain
     Dosage: UNK, BID
  3. KETOPROFEN [Suspect]
     Active Substance: KETOPROFEN
     Dosage: UNK, QD

REACTIONS (10)
  - Constipation [Unknown]
  - Nausea [Unknown]
  - Cyst [Unknown]
  - Inflammation [Unknown]
  - Back pain [Unknown]
  - Ulcer [Unknown]
  - Condition aggravated [Unknown]
  - Dyspepsia [Unknown]
  - Fatigue [Unknown]
  - Product dose omission issue [Unknown]
